FAERS Safety Report 11490203 (Version 1)
Quarter: 2015Q3

REPORT INFORMATION
  Report Type: Spontaneous
  Country: US (occurrence: US)
  Receive Date: 20150910
  Receipt Date: 20150910
  Transmission Date: 20151125
  Serious: No
  Sender: FDA-Public Use
  Company Number: US-TEVA-570962USA

PATIENT
  Age: 58 Year
  Sex: Male

DRUGS (1)
  1. CAPECITABINE. [Suspect]
     Active Substance: CAPECITABINE
     Indication: GASTRIC CANCER
     Dosage: 4 TABS BID FOR 14 DAYS, THEN 7 DAYS OFF REPEAT
     Route: 048
     Dates: start: 20150605

REACTIONS (1)
  - Malaise [Unknown]
